FAERS Safety Report 5833053-4 (Version None)
Quarter: 2008Q3

REPORT INFORMATION
  Report Type: 
  Country: None (occurrence: None)
  Receive Date: 20080805
  Receipt Date: 20080723
  Transmission Date: 20090109
  Serious: Yes (Other)
  Sender: FDA-Public Use
  Company Number: DE-ASTRAZENECA-2008PK01495

PATIENT
  Age: 850 Month
  Sex: Female
  Weight: 87.2 kg

DRUGS (5)
  1. ARIMIDEX [Suspect]
     Indication: BREAST CANCER FEMALE
     Route: 048
     Dates: start: 20071109, end: 20080117
  2. ARIMIDEX [Suspect]
     Route: 048
     Dates: start: 20080301
  3. SEROXAT [Concomitant]
  4. LORZAAR [Concomitant]
  5. ESIDRIX [Concomitant]

REACTIONS (2)
  - DEPRESSION [None]
  - SUICIDAL IDEATION [None]
